FAERS Safety Report 14092000 (Version 2)
Quarter: 2017Q4

REPORT INFORMATION
  Report Type: Spontaneous
  Country: US (occurrence: US)
  Receive Date: 20171016
  Receipt Date: 20171215
  Transmission Date: 20180321
  Serious: No
  Sender: FDA-Public Use
  Company Number: US-PFIZER INC-2017443137

PATIENT
  Sex: Female

DRUGS (9)
  1. ESTROGENS CONJUGATED [Suspect]
     Active Substance: ESTROGENS, CONJUGATED
     Indication: VAGINAL ODOUR
  2. PREMARIN [Suspect]
     Active Substance: ESTROGENS, CONJUGATED
     Indication: VULVOVAGINAL PRURITUS
  3. PREMARIN [Suspect]
     Active Substance: ESTROGENS, CONJUGATED
     Indication: VULVOVAGINAL DISCOMFORT
     Dosage: UNK
  4. REPHRESH (CARBOMER\GLYCERIN\POLYCARBOPHIL) [Suspect]
     Active Substance: CARBOMER\GLYCERIN\POLYCARBOPHIL
     Indication: VULVOVAGINAL DISCOMFORT
     Dosage: UNK
  5. REPHRESH (CARBOMER\GLYCERIN\POLYCARBOPHIL) [Suspect]
     Active Substance: CARBOMER\GLYCERIN\POLYCARBOPHIL
     Indication: VAGINAL ODOUR
  6. ESTROGENS CONJUGATED [Suspect]
     Active Substance: ESTROGENS, CONJUGATED
     Indication: VULVOVAGINAL DISCOMFORT
     Dosage: UNK
  7. ESTROGENS CONJUGATED [Suspect]
     Active Substance: ESTROGENS, CONJUGATED
     Indication: VULVOVAGINAL PRURITUS
  8. REPHRESH (CARBOMER\GLYCERIN\POLYCARBOPHIL) [Suspect]
     Active Substance: CARBOMER\GLYCERIN\POLYCARBOPHIL
     Indication: VULVOVAGINAL PRURITUS
  9. PREMARIN [Suspect]
     Active Substance: ESTROGENS, CONJUGATED
     Indication: VAGINAL ODOUR

REACTIONS (3)
  - Drug ineffective [Unknown]
  - Condition aggravated [Unknown]
  - Vulvovaginal discomfort [Unknown]
